FAERS Safety Report 6956967-0 (Version None)
Quarter: 2010Q3

REPORT INFORMATION
  Report Type: 
  Country: None (occurrence: None)
  Receive Date: 20100827
  Receipt Date: 20100827
  Transmission Date: 20110219
  Serious: Yes (Hospitalization)
  Sender: FDA-Public Use
  Company Number: None

PATIENT
  Sex: Male
  Weight: 109.8 kg

DRUGS (13)
  1. CISPLATIN [Suspect]
     Dosage: 88 MG
     Dates: end: 20100729
  2. ALIMTA [Suspect]
     Dosage: 1175 MG
     Dates: end: 20100729
  3. ACTOS [Concomitant]
  4. BENADRYL [Concomitant]
  5. CYMBALTA [Concomitant]
  6. DEXAMETHASONE [Concomitant]
  7. GLYBURIDE AND METFORMIN HYDROCHLORIDE [Concomitant]
  8. LANTUS [Concomitant]
  9. LISINOPRIL [Concomitant]
  10. METOCLOPRAMIDE [Concomitant]
  11. ONDANSETRON HCL [Concomitant]
  12. PROCHLORPERAZINE MALEATE [Concomitant]
  13. ZETIA [Concomitant]

REACTIONS (7)
  - ANAEMIA [None]
  - BALANCE DISORDER [None]
  - FACE INJURY [None]
  - FACIAL BONES FRACTURE [None]
  - FALL [None]
  - NASAL SEPTUM DISORDER [None]
  - SYNCOPE [None]
